FAERS Safety Report 5150396-0 (Version None)
Quarter: 2006Q4

REPORT INFORMATION
  Report Type: 
  Country: None (occurrence: None)
  Receive Date: 20061114
  Receipt Date: 20061017
  Transmission Date: 20070319
  Serious: Yes (Life-Threatening)
  Sender: FDA-Public Use
  Company Number: 2006SE05612

PATIENT
  Age: 852 Month
  Sex: Male

DRUGS (1)
  1. ROSUVASTATIN [Suspect]
     Indication: CARDIOVASCULAR EVENT PROPHYLAXIS
     Route: 048
     Dates: start: 20051209, end: 20061017

REACTIONS (1)
  - PANCREATIC CARCINOMA METASTATIC [None]
